FAERS Safety Report 10004057 (Version 2)
Quarter: 2014Q1

REPORT INFORMATION
  Report Type: Spontaneous
  Country: US (occurrence: US)
  Receive Date: 20140312
  Receipt Date: 20140312
  Transmission Date: 20141002
  Serious: No
  Sender: FDA-Public Use
  Company Number: US-INCYTE CORPORATION-2013IN002783

PATIENT
  Age: 73 Year
  Sex: Female

DRUGS (15)
  1. JAKAFI [Suspect]
     Indication: MYELOFIBROSIS
     Dosage: 10 MG, BID
     Route: 048
     Dates: start: 20131114, end: 2013
  2. PRILOSEC                           /00661201/ [Concomitant]
  3. AMLODIPINE [Concomitant]
  4. ASPIRIN [Concomitant]
     Dosage: 81 MG, UNK
     Route: 065
  5. CALCIUM [Concomitant]
  6. VITAMIN D                          /00107901/ [Concomitant]
  7. TYLENOL PM [Concomitant]
  8. LEVOTHYROXINE [Concomitant]
     Dosage: 50 MCG, UNK
  9. METOPROLOL [Concomitant]
  10. MULTIVITAMIN                       /00097801/ [Concomitant]
  11. FISH OIL [Concomitant]
  12. SYMBICORT [Concomitant]
  13. ALBUTEROL                          /00139501/ [Concomitant]
  14. LORAZEPAM [Concomitant]
     Dosage: 0.5 MG, UNK
  15. RANEXA [Concomitant]

REACTIONS (4)
  - Malaise [Not Recovered/Not Resolved]
  - Nausea [Not Recovered/Not Resolved]
  - Haemoglobin decreased [Unknown]
  - Headache [Not Recovered/Not Resolved]
